FAERS Safety Report 4807234-2 (Version None)
Quarter: 2005Q4

REPORT INFORMATION
  Report Type: 
  Country: None (occurrence: None)
  Receive Date: 20051020
  Receipt Date: 20051020
  Transmission Date: 20060501
  Serious: Yes (Hospitalization)
  Sender: FDA-Public Use
  Company Number: None

PATIENT
  Age: 57 Year
  Sex: Male
  Weight: 174.1 kg

DRUGS (16)
  1. DICLOXACILLIN SODIUM [Suspect]
  2. ADALAT CC [Concomitant]
  3. ENALAPRIL MALEATE [Concomitant]
  4. ASPIRIN [Concomitant]
  5. FUROSEMIDE [Concomitant]
  6. INSULIN NPH HUMAN 100 U/ML INJ NOVOLIN N [Concomitant]
  7. INSULIN REG HUMAN 100 U/ML INJ NOVOLIN R [Concomitant]
  8. TERAZOSIN HCL [Concomitant]
  9. ATENOLOL [Concomitant]
  10. LORAZEPAM [Concomitant]
  11. PREDNISONE [Concomitant]
  12. METOLAZONE [Concomitant]
  13. POTASSIUM CHLORIDE [Concomitant]
  14. NITROGLYCERIN [Concomitant]
  15. SERTRALINE HCL [Concomitant]
  16. SILVER SULFADIAZINE [Concomitant]

REACTIONS (2)
  - PRURITUS [None]
  - RASH [None]
